FAERS Safety Report 12880311 (Version 3)
Quarter: 2017Q2

REPORT INFORMATION
  Report Type: Report from Study
  Country: MX (occurrence: MX)
  Receive Date: 20161025
  Receipt Date: 20170410
  Transmission Date: 20170830
  Serious: Yes (Death, Other)
  Sender: FDA-Public Use
  Company Number: PHHY2015MX122896

PATIENT
  Sex: Female

DRUGS (5)
  1. DAFLON [Concomitant]
     Active Substance: DIOSMIN\HESPERIDIN
     Indication: PRODUCT USED FOR UNKNOWN INDICATION
     Route: 065
  2. CO-DIOVAN [Suspect]
     Active Substance: HYDROCHLOROTHIAZIDE\VALSARTAN
     Indication: HYPERTENSION
     Dosage: 1 DF, QD (HYDROCHLOROTHIAZIDE 12.5 MG, VALSARTAN 160 MG) (HALF IN THE MORNING AND HALF AT NIGHT)
     Route: 065
  3. METFORMIN [Concomitant]
     Active Substance: METFORMIN HYDROCHLORIDE
     Indication: PRODUCT USED FOR UNKNOWN INDICATION
     Dosage: UNK MG, UNK
     Route: 065
  4. CO-DIOVAN [Suspect]
     Active Substance: HYDROCHLOROTHIAZIDE\VALSARTAN
     Dosage: 2 DF, QD, (HYDROCHLOROTHIAZIDE 12.5 MG, VALSARTAN 160 MG) 1IN THE MORNING AND 1 IN THE NIGHT
     Route: 065
     Dates: end: 201607
  5. METOPROLOL. [Concomitant]
     Active Substance: METOPROLOL
     Indication: PRODUCT USED FOR UNKNOWN INDICATION
     Route: 065

REACTIONS (7)
  - Chronic kidney disease [Fatal]
  - Anaemia [Fatal]
  - Wrong technique in product usage process [Unknown]
  - Inappropriate schedule of drug administration [Recovered/Resolved]
  - Haemorrhage [Unknown]
  - Blood disorder [Unknown]
  - Renal disorder [Unknown]
